FAERS Safety Report 17900712 (Version 1)
Quarter: 2020Q2

REPORT INFORMATION
  Report Type: Spontaneous
  Country: DE (occurrence: DE)
  Receive Date: 20200616
  Receipt Date: 20200616
  Transmission Date: 20200714
  Serious: Yes (Other)
  Sender: FDA-Public Use
  Company Number: DE-BRISTOL-MYERS SQUIBB COMPANY-BMS-2020-047585

PATIENT
  Age: 84 Year
  Sex: Male

DRUGS (1)
  1. ELIQUIS [Suspect]
     Active Substance: APIXABAN
     Indication: CEREBROVASCULAR ACCIDENT PROPHYLAXIS
     Dosage: 2.5 MG PER DAY
     Route: 065
     Dates: end: 20200114

REACTIONS (6)
  - Renal tubular acidosis [Unknown]
  - Pleural effusion [Unknown]
  - Respiratory acidosis [Unknown]
  - Prescribed underdose [Unknown]
  - Respiratory failure [Unknown]
  - Psychotic disorder [Unknown]
